FAERS Safety Report 8075771-6 (Version None)
Quarter: 2012Q1

REPORT INFORMATION
  Report Type: 
  Country: None (occurrence: None)
  Receive Date: 20120127
  Receipt Date: 20120118
  Transmission Date: 20120608
  Serious: Yes (Death, Life-Threatening, Other)
  Sender: FDA-Public Use
  Company Number: JP-AMGEN-JPNCT2011065263

PATIENT
  Age: 74 Year
  Sex: Male
  Weight: 45 kg

DRUGS (16)
  1. CELESTAMINE TAB [Concomitant]
     Indication: ALLERGY PROPHYLAXIS
     Route: 048
     Dates: start: 20101013, end: 20101110
  2. VALPROATE SODIUM [Concomitant]
     Indication: EPILEPSY
     Route: 048
     Dates: start: 20091225, end: 20110101
  3. PANITUMUMAB [Suspect]
     Indication: COLORECTAL CANCER
     Dosage: 6 MG/KG, Q2WK
     Route: 041
     Dates: start: 20101013, end: 20101013
  4. CORTICOSTEROIDS [Concomitant]
     Indication: PROPHYLAXIS
     Dosage: UNK
     Route: 065
  5. OXALIPLATIN [Concomitant]
     Indication: COLORECTAL CANCER
     Dosage: 130 MG/M2, UNK
     Route: 041
     Dates: start: 20101013, end: 20101201
  6. ZOFRAN [Concomitant]
     Indication: ALLERGY PROPHYLAXIS
     Route: 048
     Dates: start: 20101013, end: 20101110
  7. METHYCOBAL [Concomitant]
     Indication: NEUROPATHY PERIPHERAL
     Route: 048
     Dates: start: 20091225, end: 20110101
  8. PANITUMUMAB [Suspect]
     Dosage: 6 MG/KG, Q2WK
     Route: 041
     Dates: start: 20101110, end: 20101201
  9. IRINOTECAN HYDROCHLORIDE [Concomitant]
     Dosage: 140 MG, UNK
  10. BEVACIZUMAB [Concomitant]
     Dosage: 5 MG/KG, UNK
  11. MINOCYCLINE HCL [Concomitant]
     Dosage: UNK
     Route: 048
  12. GASLON N [Concomitant]
     Indication: PROPHYLAXIS
     Route: 048
     Dates: start: 20101013, end: 20110601
  13. CAPECITABINE [Suspect]
     Indication: COLORECTAL CANCER
     Dosage: 1800 MG, UNK
     Route: 048
     Dates: start: 20101013, end: 20101222
  14. ANTIHISTAMINES [Concomitant]
     Indication: PROPHYLAXIS
     Dosage: UNK
     Route: 065
  15. TS 1 [Suspect]
     Route: 048
     Dates: start: 20110209, end: 20110223
  16. TS 1 [Suspect]
     Route: 048
     Dates: start: 20110323, end: 20110615

REACTIONS (7)
  - NEUTROPHIL COUNT DECREASED [None]
  - INTERSTITIAL LUNG DISEASE [None]
  - INFUSION RELATED REACTION [None]
  - COLORECTAL CANCER [None]
  - CONJUNCTIVITIS [None]
  - ACNE [None]
  - DECREASED APPETITE [None]
